FAERS Safety Report 5338417-3 (Version None)
Quarter: 2007Q2

REPORT INFORMATION
  Report Type: 
  Country: None (occurrence: None)
  Receive Date: 20070322
  Receipt Date: 20060717
  Transmission Date: 20071010
  Serious: Yes (Other)
  Sender: FDA-Public Use
  Company Number: 200611859BCC

PATIENT
  Age: 55 Year
  Sex: Male
  Weight: 111.1313 kg

DRUGS (1)
  1. ALEVE [Suspect]
     Indication: BACK PAIN
     Dosage: 440 MG, QD, ORAL
     Route: 048
     Dates: start: 20060428, end: 20060430

REACTIONS (4)
  - ANGIOEDEMA [None]
  - ERYTHEMA [None]
  - SWOLLEN TONGUE [None]
  - THROAT TIGHTNESS [None]
